FAERS Safety Report 20725958 (Version 1)
Quarter: 2022Q2

REPORT INFORMATION
  Report Type: Spontaneous
  Country: CA (occurrence: CA)
  Receive Date: 20220419
  Receipt Date: 20220419
  Transmission Date: 20220720
  Serious: Yes (Hospitalization)
  Sender: FDA-Public Use
  Company Number: CA-PFIZER INC-202200555118

PATIENT
  Age: 57 Year
  Sex: Female

DRUGS (3)
  1. LINEZOLID [Suspect]
     Active Substance: LINEZOLID
     Indication: Pathogen resistance
     Dosage: UNK
     Route: 042
  2. LINEZOLID [Suspect]
     Active Substance: LINEZOLID
     Indication: Arthritis infective
  3. LOSEC [Concomitant]
     Active Substance: OMEPRAZOLE
     Dosage: UNK

REACTIONS (21)
  - Abdominal pain [Unknown]
  - Abdominal pain upper [Unknown]
  - Arthritis infective [Unknown]
  - Confusional state [Unknown]
  - Dizziness [Unknown]
  - Dysphonia [Unknown]
  - Haematochezia [Unknown]
  - Heart rate irregular [Unknown]
  - Hyperhidrosis [Unknown]
  - Hypertension [Unknown]
  - Memory impairment [Unknown]
  - Muscle spasms [Unknown]
  - Nausea [Unknown]
  - Optic nerve injury [Unknown]
  - Palpitations [Unknown]
  - Pathogen resistance [Unknown]
  - Vertigo [Unknown]
  - Vision blurred [Unknown]
  - Vomiting [Unknown]
  - Drug ineffective for unapproved indication [Unknown]
  - Off label use [Unknown]
